FAERS Safety Report 26019795 (Version 1)
Quarter: 2025Q4

REPORT INFORMATION
  Report Type: Spontaneous
  Country: US (occurrence: US)
  Receive Date: 20251110
  Receipt Date: 20251110
  Transmission Date: 20260118
  Serious: No
  Sender: GALPHARM INTERNATIONAL
  Company Number: US-PERRIGO-24US010957

PATIENT
  Sex: Male
  Weight: 75.283 kg

DRUGS (3)
  1. POLYETHYLENE GLYCOL 3350 [Suspect]
     Active Substance: POLYETHYLENE GLYCOL 3350
     Indication: Constipation
     Dosage: 17 G, QD
     Route: 048
     Dates: start: 2022
  2. MYRBETRIQ [Concomitant]
     Active Substance: MIRABEGRON
     Indication: Urinary tract disorder
     Dosage: UNK
     Route: 065
     Dates: start: 2022
  3. TAMSULOSIN [Concomitant]
     Active Substance: TAMSULOSIN
     Indication: Urinary tract disorder
     Dosage: UNK
     Route: 065
     Dates: start: 2022

REACTIONS (1)
  - Incorrect product administration duration [Unknown]

NARRATIVE: CASE EVENT DATE: 20220101
